FAERS Safety Report 6221600-2 (Version None)
Quarter: 2009Q2

REPORT INFORMATION
  Report Type: 
  Country: None (occurrence: None)
  Receive Date: 20090610
  Receipt Date: 20090604
  Transmission Date: 20091009
  Serious: Yes (Hospitalization)
  Sender: FDA-Public Use
  Company Number: US-WATSON-2009-04134

PATIENT
  Age: 15 Year
  Sex: Female

DRUGS (1)
  1. AZURETTE(DESOGESTREL/ETHINYL ESTRADIOL[EE] 0.15/0.02, EE 0.01)(WATSON) [Suspect]
     Indication: MENSTRUAL DISORDER
     Dosage: 1 TABLET, SINGLE USE ONLY
     Route: 048
     Dates: start: 20090531, end: 20090531

REACTIONS (7)
  - DYSARTHRIA [None]
  - HEADACHE [None]
  - HYPERSENSITIVITY [None]
  - HYPOAESTHESIA [None]
  - INCOHERENT [None]
  - PARALYSIS [None]
  - TREMOR [None]
